FAERS Safety Report 23650771 (Version 1)
Quarter: 2024Q1

REPORT INFORMATION
  Report Type: Spontaneous
  Country: ES (occurrence: ES)
  Receive Date: 20240320
  Receipt Date: 20240320
  Transmission Date: 20240409
  Serious: Yes (Other)
  Sender: FDA-Public Use
  Company Number: None

PATIENT
  Age: 4 Year
  Sex: Female

DRUGS (1)
  1. AMOXICILLIN [Suspect]
     Active Substance: AMOXICILLIN
     Indication: Respiratory tract infection
     Dosage: AMOXICILINA (108A)
     Route: 065
     Dates: start: 20240104, end: 20240108

REACTIONS (4)
  - Oedema peripheral [Unknown]
  - Pruritus [Unknown]
  - Oedema peripheral [Unknown]
  - Rash [Unknown]

NARRATIVE: CASE EVENT DATE: 20240108
